FAERS Safety Report 15989716 (Version 4)
Quarter: 2019Q4

REPORT INFORMATION
  Report Type: Report from Study
  Country: AU (occurrence: AU)
  Receive Date: 20190221
  Receipt Date: 20191219
  Transmission Date: 20200122
  Serious: Yes (Other)
  Sender: FDA-Public Use
  Company Number: PHHY2015AU139981

PATIENT
  Age: 50 Year
  Sex: Male
  Weight: 82.9 kg

DRUGS (5)
  1. GILENYA [Suspect]
     Active Substance: FINGOLIMOD HYDROCHLORIDE
     Indication: MULTIPLE SCLEROSIS
     Dosage: 0.5 MG, QD
     Route: 048
     Dates: start: 20151008, end: 20160411
  2. VARICELLA ZOSTER VACCINE [Suspect]
     Active Substance: VARICELLA-ZOSTER VIRUS STRAIN OKA/MERCK LIVE ANTIGEN
     Indication: PRODUCT USED FOR UNKNOWN INDICATION
     Dosage: UNK
     Route: 065
     Dates: start: 20151008
  3. GILENYA [Suspect]
     Active Substance: FINGOLIMOD HYDROCHLORIDE
     Dosage: UNK UNK, QD
     Route: 048
     Dates: start: 201605
  4. METHYLPREDNISOLONE. [Concomitant]
     Active Substance: METHYLPREDNISOLONE
     Dosage: UNK
     Route: 065
     Dates: start: 20150815, end: 20150827
  5. METHYLPREDNISOLONE. [Concomitant]
     Active Substance: METHYLPREDNISOLONE
     Indication: PRODUCT USED FOR UNKNOWN INDICATION
     Dosage: 750 MG, UNK
     Route: 042
     Dates: start: 20150811, end: 20150814

REACTIONS (26)
  - Pruritus [Recovered/Resolved]
  - Vision blurred [Unknown]
  - Nasopharyngitis [Recovered/Resolved]
  - Varicella [Recovered/Resolved]
  - Lymphocyte count decreased [Unknown]
  - Central nervous system lesion [Unknown]
  - Gamma-glutamyltransferase increased [Unknown]
  - Nasopharyngitis [Recovered/Resolved]
  - Rash [Unknown]
  - Nasopharyngitis [Recovered/Resolved]
  - Aspartate aminotransferase increased [Unknown]
  - Alanine aminotransferase increased [Unknown]
  - Joint hyperextension [Unknown]
  - Paraesthesia [Recovered/Resolved]
  - Fatigue [Unknown]
  - Basal cell carcinoma [Recovered/Resolved]
  - Skin lesion [Recovered/Resolved]
  - Nasopharyngitis [Recovered/Resolved]
  - Neurological symptom [Unknown]
  - Vaccination error [Unknown]
  - Blood cholesterol decreased [Unknown]
  - Dizziness [Unknown]
  - Weight decreased [Unknown]
  - Varicella [Recovered/Resolved]
  - Paraesthesia [Recovered/Resolved]
  - White matter lesion [Unknown]

NARRATIVE: CASE EVENT DATE: 2015
